FAERS Safety Report 19468457 (Version 1)
Quarter: 2021Q2

REPORT INFORMATION
  Report Type: Spontaneous
  Country: DE (occurrence: DE)
  Receive Date: 20210628
  Receipt Date: 20210628
  Transmission Date: 20210717
  Serious: Yes (Other)
  Sender: FDA-Public Use
  Company Number: DE-INCYTE CORPORATION-2021IN005376

PATIENT

DRUGS (3)
  1. JAKAVI [Suspect]
     Active Substance: RUXOLITINIB
     Indication: POLYCYTHAEMIA VERA
     Dosage: UNK
     Route: 065
  2. L?THYROXIN 1A PHARMA [Suspect]
     Active Substance: LEVOTHYROXINE SODIUM
     Indication: THYROID DISORDER
     Dosage: UNK
     Route: 065
  3. TELMISARTAN. [Concomitant]
     Active Substance: TELMISARTAN
     Indication: HYPERTENSION
     Dosage: UNK
     Route: 065

REACTIONS (9)
  - Haematoma [Unknown]
  - Hypoaesthesia [Unknown]
  - Dizziness [Unknown]
  - Alanine aminotransferase increased [Unknown]
  - Flatulence [Unknown]
  - Condition aggravated [Unknown]
  - Accident at home [Unknown]
  - Haemorrhage [Unknown]
  - Weight increased [Unknown]
